FAERS Safety Report 18663664 (Version 1)
Quarter: 2020Q4

REPORT INFORMATION
  Report Type: Spontaneous
  Country: NL (occurrence: NL)
  Receive Date: 20201224
  Receipt Date: 20201224
  Transmission Date: 20210114
  Serious: Yes (Hospitalization)
  Sender: FDA-Public Use
  Company Number: NL-MYLANLABS-2020M1103865

PATIENT
  Sex: Female

DRUGS (4)
  1. ETHINYLESTRADIOL [Concomitant]
     Active Substance: ETHINYL ESTRADIOL
     Dosage: OMHULDE TABLET, 30 ?G (MICROGRAM)/3 MG (MILLIGRAM)
  2. PAROXETINE. [Suspect]
     Active Substance: PAROXETINE
     Indication: DEPRESSION
     Dosage: 1 X PER DAG 1 TABLET
     Dates: start: 20201028, end: 20201124
  3. ISOTRETINOIN. [Suspect]
     Active Substance: ISOTRETINOIN
     Indication: ACNE
     Dosage: 1X PER DAG 2 CAPSULES. DOSERING WAS WISSELEND 1 OF 2 CAPSULES PER DAG
     Dates: start: 20201028
  4. OXAZEPAM. [Concomitant]
     Active Substance: OXAZEPAM
     Dosage: TABLET, 10 MG (MILLIGRAM)

REACTIONS (1)
  - Serotonin syndrome [Recovering/Resolving]
